FAERS Safety Report 5103035-9 (Version None)
Quarter: 2006Q3

REPORT INFORMATION
  Report Type: 
  Country: None (occurrence: None)
  Receive Date: 20060908
  Receipt Date: 20060828
  Transmission Date: 20061208
  Serious: Yes (Congenital Anomaly)
  Sender: FDA-Public Use
  Company Number: 64555/110

PATIENT
  Sex: 0

DRUGS (1)
  1. LEVONORGESTREL [Suspect]
     Indication: POST COITAL CONTRACEPTION
     Dosage: 1.5 MG, 1 DOSE, TRANSPLACENTAL
     Route: 064

REACTIONS (4)
  - ATRIOVENTRICULAR SEPTAL DEFECT [None]
  - DRUG EXPOSURE DURING PREGNANCY [None]
  - HAEMANGIOMA OF SKIN [None]
  - STURGE-WEBER SYNDROME [None]
